FAERS Safety Report 6748747-6 (Version None)
Quarter: 2010Q2

REPORT INFORMATION
  Report Type: 
  Country: None (occurrence: None)
  Receive Date: 20100601
  Receipt Date: 20100518
  Transmission Date: 20101027
  Serious: Yes (Hospitalization, Other)
  Sender: FDA-Public Use
  Company Number: PHHY2010US31332

PATIENT
  Sex: Male
  Weight: 21 kg

DRUGS (5)
  1. EXJADE [Suspect]
     Indication: THALASSAEMIA
     Dosage: 750 MG, QD
     Dates: start: 20060426, end: 20090323
  2. EXJADE [Suspect]
     Indication: IRON OVERLOAD
     Dosage: 750 MG, QD
     Route: 048
     Dates: start: 20090331
  3. EXJADE [Suspect]
     Dosage: UNK
     Route: 048
     Dates: start: 20091028, end: 20100223
  4. PENICILLIN V [Concomitant]
     Indication: SPLENECTOMY
     Dosage: 250 MG, BID
     Route: 048
     Dates: start: 20080401, end: 20100510
  5. FOLIC ACID [Concomitant]
     Dosage: 9 MG, DAILY
     Route: 048
     Dates: start: 20081208, end: 20100510

REACTIONS (6)
  - ALANINE AMINOTRANSFERASE INCREASED [None]
  - ASPARTATE AMINOTRANSFERASE INCREASED [None]
  - BONE DISORDER [None]
  - BONE MARROW TRANSPLANT [None]
  - LIVER FUNCTION TEST ABNORMAL [None]
  - PYREXIA [None]
